FAERS Safety Report 4518874-2 (Version None)
Quarter: 2004Q4

REPORT INFORMATION
  Report Type: 
  Country: None (occurrence: None)
  Receive Date: 20041206
  Receipt Date: 20041125
  Transmission Date: 20050328
  Serious: Yes (Hospitalization)
  Sender: FDA-Public Use
  Company Number: FR-BRISTOL-MYERS SQUIBB COMPANY-12775763

PATIENT
  Age: 32 Year
  Sex: Male

DRUGS (7)
  1. FLUPHENAZINE [Suspect]
     Route: 030
  2. MEPRONIZINE [Suspect]
     Route: 048
  3. VICTAN [Suspect]
     Route: 048
  4. STILNOX [Suspect]
  5. DEPAKINE CHRONO [Suspect]
  6. ISOPTIN [Suspect]
  7. ALLOPURINOL [Suspect]

REACTIONS (1)
  - HYPONATRAEMIA [None]
